FAERS Safety Report 21652184 (Version 1)
Quarter: 2022Q4

REPORT INFORMATION
  Report Type: Spontaneous
  Country: US (occurrence: None)
  Receive Date: 20221125
  Receipt Date: 20221125
  Transmission Date: 20230113
  Serious: Yes (Disabling)
  Sender: FDA-Public Use
  Company Number: None

PATIENT
  Age: 39 Year
  Sex: Female
  Weight: 70.65 kg

DRUGS (16)
  1. CETIRIZINE HYDROCHLORIDE [Suspect]
     Active Substance: CETIRIZINE HYDROCHLORIDE
     Indication: Hypersensitivity
     Dosage: OTHER QUANTITY : 1 TABLET(S);?FREQUENCY : AT BEDTIME;?
     Route: 048
     Dates: start: 20080401, end: 20221118
  2. CETIRIZINE HYDROCHLORIDE [Suspect]
     Active Substance: CETIRIZINE HYDROCHLORIDE
     Indication: Seasonal allergy
  3. CETIRIZINE HYDROCHLORIDE [Suspect]
     Active Substance: CETIRIZINE HYDROCHLORIDE
     Indication: Allergy to animal
  4. BUPROPION [Concomitant]
     Active Substance: BUPROPION
  5. VALACYCLOVIR [Concomitant]
     Active Substance: VALACYCLOVIR HYDROCHLORIDE
  6. MONTELUKAST [Concomitant]
     Active Substance: MONTELUKAST SODIUM
  7. PROPRANOLOL [Concomitant]
     Active Substance: PROPRANOLOL HYDROCHLORIDE
  8. ATORVASTATIN CALCIUM [Concomitant]
     Active Substance: ATORVASTATIN CALCIUM
  9. FLUTICASONE PROPIONATE [Concomitant]
     Active Substance: FLUTICASONE PROPIONATE
  10. ALBUTEROL [Concomitant]
     Active Substance: ALBUTEROL
  11. FAMOTIDINE [Concomitant]
     Active Substance: FAMOTIDINE
  12. FISH OIL [Concomitant]
     Active Substance: FISH OIL
  13. PSYLLIUM HUSK [Concomitant]
     Active Substance: PSYLLIUM HUSK
  14. VITAMIN D3 [Concomitant]
     Active Substance: CHOLECALCIFEROL
  15. hair skin [Concomitant]
  16. nails multivitamin [Concomitant]

REACTIONS (4)
  - Pruritus [None]
  - Scratch [None]
  - Skin haemorrhage [None]
  - Urticaria [None]

NARRATIVE: CASE EVENT DATE: 20221123
